FAERS Safety Report 5822223-7 (Version None)
Quarter: 2008Q3

REPORT INFORMATION
  Report Type: 
  Country: None (occurrence: None)
  Receive Date: 20080725
  Receipt Date: 20080531
  Transmission Date: 20090109
  Serious: No
  Sender: FDA-Public Use
  Company Number: US-AMGEN-KDL284364

PATIENT
  Sex: Female
  Weight: 61.7 kg

DRUGS (3)
  1. PROCRIT [Suspect]
     Indication: ANAEMIA
     Dates: start: 20080521
  2. ZOCOR [Concomitant]
     Route: 048
  3. IRON [Concomitant]
     Route: 048

REACTIONS (8)
  - ASTHENIA [None]
  - CYSTITIS [None]
  - DYSPNOEA [None]
  - EATING DISORDER [None]
  - HEART RATE INCREASED [None]
  - INSOMNIA [None]
  - PAIN IN EXTREMITY [None]
  - PALPITATIONS [None]
